FAERS Safety Report 11246996 (Version 1)
Quarter: 2015Q3

REPORT INFORMATION
  Report Type: Spontaneous
  Country: US (occurrence: None)
  Receive Date: 20150706
  Receipt Date: 20150706
  Transmission Date: 20151125
  Serious: Yes (Other)
  Sender: FDA-Public Use
  Company Number: None

PATIENT
  Age: 44 Year
  Sex: Female

DRUGS (2)
  1. STELARA [Suspect]
     Active Substance: USTEKINUMAB
     Indication: PSORIATIC ARTHROPATHY
     Dosage: EVERY 12 WEEKS
     Route: 058
     Dates: start: 20141202, end: 20150701
  2. STELARA [Suspect]
     Active Substance: USTEKINUMAB
     Dosage: EVERY 12 WEEKS
     Route: 058
     Dates: start: 20141202, end: 20150701

REACTIONS (3)
  - Psoriasis [None]
  - Psoriatic arthropathy [None]
  - Drug ineffective [None]

NARRATIVE: CASE EVENT DATE: 20150701
